FAERS Safety Report 4643186-6 (Version None)
Quarter: 2005Q2

REPORT INFORMATION
  Report Type: 
  Country: None (occurrence: None)
  Receive Date: 20050422
  Receipt Date: 20050117
  Transmission Date: 20051028
  Serious: Yes (Hospitalization)
  Sender: FDA-Public Use
  Company Number: US-MERCK-0501USA02884

PATIENT
  Age: 48 Year
  Sex: Male
  Weight: 82 kg

DRUGS (14)
  1. VIOXX [Suspect]
     Indication: ARTHRITIS
     Route: 048
     Dates: start: 19991101, end: 20001101
  2. VIOXX [Suspect]
     Route: 048
     Dates: start: 20001101, end: 20040101
  3. ASPIRIN [Concomitant]
     Route: 065
     Dates: start: 19900101, end: 20030701
  4. VISKEN [Concomitant]
     Route: 065
  5. AMBIEN [Concomitant]
     Route: 065
  6. NEXIUM [Concomitant]
     Route: 065
  7. LACTULOSE [Concomitant]
     Route: 065
  8. SYNTHROID [Concomitant]
     Route: 065
  9. DIDREX [Concomitant]
     Indication: WEIGHT DECREASED
     Route: 065
  10. EPOGEN [Concomitant]
     Route: 065
  11. ATIVAN [Concomitant]
     Route: 065
  12. RESTORIL [Concomitant]
     Route: 065
  13. FLORINEF [Concomitant]
     Route: 065
  14. IBUPROFEN [Concomitant]
     Route: 065
     Dates: start: 19991001, end: 20030101

REACTIONS (11)
  - CHEST PAIN [None]
  - DEEP VEIN THROMBOSIS [None]
  - DIZZINESS [None]
  - DYSPNOEA [None]
  - GROIN PAIN [None]
  - PAIN IN EXTREMITY [None]
  - ROTATOR CUFF SYNDROME [None]
  - SINUS BRADYCARDIA [None]
  - THROMBOSIS [None]
  - TRAUMATIC HAEMATOMA [None]
  - VARICOSE VEIN [None]
